FAERS Safety Report 24324571 (Version 2)
Quarter: 2024Q4

REPORT INFORMATION
  Report Type: Spontaneous
  Country: RO (occurrence: RO)
  Receive Date: 20240916
  Receipt Date: 20241209
  Transmission Date: 20250114
  Serious: Yes (Other)
  Sender: ALEXION PHARMACEUTICALS
  Company Number: 2024A207425

PATIENT
  Age: 76 Year

DRUGS (7)
  1. ANASTROZOLE [Suspect]
     Active Substance: ANASTROZOLE
     Indication: Breast cancer female
     Dosage: 1 MILLIGRAM, QD
  2. ANASTROZOLE [Suspect]
     Active Substance: ANASTROZOLE
     Dosage: 1 MILLIGRAM, QD
     Route: 048
  3. ANASTROZOLE [Suspect]
     Active Substance: ANASTROZOLE
     Dosage: 1 MILLIGRAM, QD
  4. ANASTROZOLE [Suspect]
     Active Substance: ANASTROZOLE
     Dosage: 1 MILLIGRAM, QD
     Route: 048
  5. VINORELBINE [Suspect]
     Active Substance: VINORELBINE TARTRATE
     Indication: Breast cancer female
     Dosage: 30 MG/M2, ON DAYS 1 AND 8 OF A 21-DAY CYCLE
  6. CAPECITABINE [Concomitant]
     Active Substance: CAPECITABINE
  7. BLEOMYCIN [Concomitant]
     Active Substance: BLEOMYCIN SULFATE

REACTIONS (2)
  - Malignant neoplasm progression [Unknown]
  - Carbohydrate antigen 15-3 increased [Unknown]
